FAERS Safety Report 10559476 (Version 4)
Quarter: 2015Q1

REPORT INFORMATION
  Report Type: Spontaneous
  Country: JP (occurrence: None)
  Receive Date: 20141030
  Receipt Date: 20150330
  Transmission Date: 20150720
  Serious: Yes (Death, Hospitalization, Other)
  Sender: FDA-Public Use
  Company Number: ADR-2014-01989

PATIENT
  Age: 21 Year
  Sex: Female

DRUGS (5)
  1. PHENOBARBITAL. [Suspect]
     Active Substance: PHENOBARBITAL
  2. THYRADIN [Suspect]
     Active Substance: LEVOTHYROXINE
  3. GABALON INTRATHECAL (0.2%) [Suspect]
     Active Substance: BACLOFEN
     Indication: CEREBRAL PALSY
     Dates: start: 20070528, end: 20141021
  4. SELBEX [Suspect]
     Active Substance: TEPRENONE
  5. LIORESAL [Suspect]
     Active Substance: BACLOFEN

REACTIONS (2)
  - Overdose [None]
  - Hepatic failure [None]

NARRATIVE: CASE EVENT DATE: 20141020
